FAERS Safety Report 7763123-5 (Version None)
Quarter: 2011Q3

REPORT INFORMATION
  Report Type: 
  Country: None (occurrence: None)
  Receive Date: 20110920
  Receipt Date: 20110907
  Transmission Date: 20111222
  Serious: Yes (Hospitalization)
  Sender: FDA-Public Use
  Company Number: PHHO2011FR14947

PATIENT
  Sex: Male
  Weight: 90 kg

DRUGS (4)
  1. PROGRAF [Concomitant]
     Dosage: 6 MG, UNK
     Route: 048
     Dates: start: 20110208
  2. RAD 666 / RAD 001A [Suspect]
     Indication: RENAL TRANSPLANT
     Dosage: 5 MG, UNK
     Route: 048
     Dates: start: 20101125
  3. PREDNISOLONE [Suspect]
     Indication: RENAL TRANSPLANT
     Dosage: 5 MG, UNK
     Route: 048
     Dates: start: 20101125
  4. MYCOPHENOLATE MOFETIL (CELLCEPT) [Suspect]
     Indication: RENAL TRANSPLANT
     Dosage: 1.5 MG, UNK
     Route: 048
     Dates: start: 20101125

REACTIONS (3)
  - DISEASE RECURRENCE [None]
  - GLOMERULONEPHRITIS MEMBRANOPROLIFERATIVE [None]
  - CYTOMEGALOVIRUS INFECTION [None]
